FAERS Safety Report 25357441 (Version 1)
Quarter: 2025Q2

REPORT INFORMATION
  Report Type: Spontaneous
  Country: FR (occurrence: FR)
  Receive Date: 20250526
  Receipt Date: 20250526
  Transmission Date: 20250716
  Serious: Yes (Other)
  Sender: ROCHE
  Company Number: FR-ROCHE-10000289897

PATIENT
  Age: 80 Year
  Sex: Female

DRUGS (1)
  1. VABYSMO [Suspect]
     Active Substance: FARICIMAB-SVOA
     Indication: Age-related macular degeneration
     Dosage: DOSE: 120 MG/ML
     Route: 050
     Dates: start: 20241216, end: 20250324

REACTIONS (2)
  - Keratic precipitates [Unknown]
  - Anterior chamber flare [Unknown]

NARRATIVE: CASE EVENT DATE: 20250519
